FAERS Safety Report 23973247 (Version 1)
Quarter: 2024Q2

REPORT INFORMATION
  Report Type: Spontaneous
  Country: US (occurrence: US)
  Receive Date: 20240613
  Receipt Date: 20240613
  Transmission Date: 20240716
  Serious: Yes (Other)
  Sender: FDA-Public Use
  Company Number: US-BAYER-2024A081479

PATIENT
  Sex: Female

DRUGS (2)
  1. MIRALAX [Suspect]
     Active Substance: POLYETHYLENE GLYCOL 3350
     Dosage: UNK
  2. Dulcolax [Concomitant]
     Indication: Colonoscopy
     Dosage: 3 DF

REACTIONS (3)
  - Condition aggravated [None]
  - Intestinal obstruction [None]
  - Abdominal pain [None]
